FAERS Safety Report 9681329 (Version 1)
Quarter: 2013Q4

REPORT INFORMATION
  Report Type: Spontaneous
  Country: US (occurrence: None)
  Receive Date: 20131108
  Receipt Date: 20131108
  Transmission Date: 20140711
  Serious: Yes (Hospitalization, Other)
  Sender: FDA-Public Use
  Company Number: None

PATIENT
  Sex: Female
  Weight: 85.73 kg

DRUGS (1)
  1. MIRENA [Suspect]

REACTIONS (8)
  - Procedural pain [None]
  - Dyspareunia [None]
  - Abdominal pain lower [None]
  - Urinary tract infection [None]
  - Vulvovaginal swelling [None]
  - Unevaluable event [None]
  - Urethral operation [None]
  - Infertility female [None]
